FAERS Safety Report 13745949 (Version 3)
Quarter: 2017Q3

REPORT INFORMATION
  Report Type: Spontaneous
  Country: FI (occurrence: FI)
  Receive Date: 20170712
  Receipt Date: 20170724
  Transmission Date: 20171127
  Serious: Yes (Other)
  Sender: FDA-Public Use
  Company Number: FI-GLAXOSMITHKLINE-FI2017GSK106494

PATIENT
  Sex: Male

DRUGS (1)
  1. DUODART [Suspect]
     Active Substance: DUTASTERIDE\TAMSULOSIN
     Indication: PRODUCT USED FOR UNKNOWN INDICATION
     Dosage: UNK
     Route: 048
     Dates: start: 20170620, end: 20170716

REACTIONS (7)
  - Cardiac discomfort [Recovered/Resolved]
  - Asthenia [Recovered/Resolved]
  - Drug dose omission [Unknown]
  - Erectile dysfunction [Unknown]
  - Libido decreased [Unknown]
  - Intentional dose omission [Unknown]
  - Chloropsia [Not Recovered/Not Resolved]

NARRATIVE: CASE EVENT DATE: 20170621
